FAERS Safety Report 9292729 (Version 2)
Quarter: 2013Q3

REPORT INFORMATION
  Report Type: Spontaneous
  Country: US (occurrence: US)
  Receive Date: 20130516
  Receipt Date: 20130812
  Transmission Date: 20140515
  Serious: Yes (Hospitalization)
  Sender: FDA-Public Use
  Company Number: US-BAYER-2013-060121

PATIENT
  Age: 34 Year
  Sex: Female

DRUGS (5)
  1. YASMIN [Suspect]
     Dosage: UNK
     Dates: start: 200512
  2. OCELLA [Suspect]
     Dosage: UNK
     Dates: start: 2008
  3. ZITHROMAX [Concomitant]
  4. LEXAPRO [Concomitant]
  5. PROPOFOL [Concomitant]

REACTIONS (9)
  - Cerebral infarction [None]
  - Transverse sinus thrombosis [None]
  - Haemorrhagic infarction [None]
  - Pain [None]
  - Injury [None]
  - General physical health deterioration [None]
  - Pain [None]
  - Anxiety [None]
  - Emotional distress [None]
